FAERS Safety Report 7543485-4 (Version None)
Quarter: 2011Q2

REPORT INFORMATION
  Report Type: 
  Country: None (occurrence: None)
  Receive Date: 20110613
  Receipt Date: 20110610
  Transmission Date: 20111010
  Serious: Yes (Hospitalization, Other)
  Sender: FDA-Public Use
  Company Number: US-UCBSA-032179

PATIENT
  Sex: Male

DRUGS (6)
  1. FLAGYL [Concomitant]
  2. CIPROFLOXACIN HCL [Concomitant]
  3. BACTRIM [Concomitant]
  4. METHOTREXATE [Concomitant]
     Route: 058
  5. CIMZIA [Suspect]
     Indication: CROHN'S DISEASE
     Route: 058
     Dates: start: 20100324
  6. IMURAN [Concomitant]
     Dates: end: 20110301

REACTIONS (3)
  - DRUG INEFFECTIVE [None]
  - POSTOPERATIVE ABSCESS [None]
  - GASTRECTOMY [None]
